FAERS Safety Report 20387488 (Version 3)
Quarter: 2022Q1

REPORT INFORMATION
  Report Type: Report from Study
  Country: JP (occurrence: JP)
  Receive Date: 20220127
  Receipt Date: 20220217
  Transmission Date: 20220423
  Serious: Yes (Other)
  Sender: FDA-Public Use
  Company Number: JP-BRISTOL-MYERS SQUIBB COMPANY-BMS-2021-093578

PATIENT
  Age: 43 Year
  Sex: Female
  Weight: 84.5 kg

DRUGS (8)
  1. IPILIMUMAB [Suspect]
     Active Substance: IPILIMUMAB
     Indication: Non-small cell lung cancer recurrent
     Dosage: 84 MILLIGRAM
     Route: 041
     Dates: start: 20210305, end: 20210305
  2. IPILIMUMAB [Suspect]
     Active Substance: IPILIMUMAB
     Dosage: 84 MILLIGRAM
     Route: 041
  3. IPILIMUMAB [Suspect]
     Active Substance: IPILIMUMAB
     Dosage: UNK
     Route: 041
     Dates: start: 202103, end: 202107
  4. NIVOLUMAB [Suspect]
     Active Substance: NIVOLUMAB
     Indication: Non-small cell lung cancer recurrent
     Dosage: 360 MILLIGRAM
     Route: 041
     Dates: start: 20210305, end: 20210629
  5. NIVOLUMAB [Suspect]
     Active Substance: NIVOLUMAB
     Dosage: UNK
     Route: 041
     Dates: start: 202103, end: 202107
  6. CARBOPLATIN [Suspect]
     Active Substance: CARBOPLATIN
     Indication: Non-small cell lung cancer recurrent
     Dosage: UNK, NOT FINISHED
     Route: 065
     Dates: start: 20210305, end: 20210305
  7. PEMETREXED [Suspect]
     Active Substance: PEMETREXED
     Indication: Non-small cell lung cancer recurrent
     Dosage: UNK, NOT FINISHED
     Route: 065
     Dates: start: 20210305, end: 20210305
  8. ZOLEDRONIC [Concomitant]
     Active Substance: ZOLEDRONIC ACID
     Indication: Metastases to bone
     Dosage: UNK
     Route: 016
     Dates: start: 202105

REACTIONS (14)
  - Leukopenia [Recovered/Resolved]
  - Malignant neoplasm progression [Unknown]
  - Hyperthyroidism [Unknown]
  - Hypothyroidism [Unknown]
  - Device related thrombosis [Unknown]
  - Diarrhoea [Recovered/Resolved]
  - Malaise [Recovered/Resolved]
  - Nausea [Recovered/Resolved]
  - Hepatic function abnormal [Recovered/Resolved]
  - Erythema [Recovered/Resolved]
  - Alanine aminotransferase increased [Unknown]
  - Vomiting [Unknown]
  - Pyrexia [Unknown]
  - Drug eruption [Unknown]

NARRATIVE: CASE EVENT DATE: 20210101
